FAERS Safety Report 9891695 (Version 3)
Quarter: 2014Q1

REPORT INFORMATION
  Report Type: Spontaneous
  Country: RU (occurrence: RU)
  Receive Date: 20140212
  Receipt Date: 20140331
  Transmission Date: 20141002
  Serious: Yes (Hospitalization, Other)
  Sender: FDA-Public Use
  Company Number: RU-ROCHE-1344081

PATIENT
  Age: 6 Year
  Sex: Female
  Weight: 17 kg

DRUGS (3)
  1. ACTEMRA [Suspect]
     Indication: JUVENILE IDIOPATHIC ARTHRITIS
     Route: 042
     Dates: start: 20121015
  2. METIPRED [Concomitant]
     Route: 048
  3. METHOTREXATE [Concomitant]
     Route: 058

REACTIONS (3)
  - Osteomyelitis chronic [Recovered/Resolved]
  - Pathological fracture [Unknown]
  - Histiocytosis haematophagic [Recovered/Resolved]
